FAERS Safety Report 5941237-X (Version None)
Quarter: 2008Q4

REPORT INFORMATION
  Report Type: 
  Country: None (occurrence: None)
  Receive Date: 20081104
  Receipt Date: 20081104
  Transmission Date: 20090506
  Serious: Yes (Other)
  Sender: FDA-Public Use
  Company Number: None

PATIENT
  Sex: Female
  Weight: 56.6996 kg

DRUGS (3)
  1. PAXIL [Suspect]
     Indication: MAJOR DEPRESSION
     Dates: start: 20080701
  2. VALIUM [Suspect]
     Indication: GENERALISED ANXIETY DISORDER
     Dosage: 10 MG 1 A DAY MOUTH
     Route: 048
     Dates: start: 20080701
  3. SOMA [Suspect]
     Indication: GENERALISED ANXIETY DISORDER
     Dosage: 350 1 TID MOUTH
     Route: 048
     Dates: start: 20080616

REACTIONS (4)
  - BLOOD TRIGLYCERIDES ABNORMAL [None]
  - FEELING JITTERY [None]
  - PRODUCT QUALITY ISSUE [None]
  - THYROID DISORDER [None]
